FAERS Safety Report 8250339-7 (Version None)
Quarter: 2012Q2

REPORT INFORMATION
  Report Type: 
  Country: None (occurrence: None)
  Receive Date: 20120402
  Receipt Date: 20120322
  Transmission Date: 20120825
  Serious: Yes (Hospitalization)
  Sender: FDA-Public Use
  Company Number: US-JNJFOC-20120213569

PATIENT
  Sex: Female
  Weight: 61.6 kg

DRUGS (8)
  1. AZATHIOPRINE [Concomitant]
  2. REMICADE [Suspect]
     Route: 042
     Dates: start: 20110329
  3. ACETAMINOPHEN [Concomitant]
  4. AZATHIOPRINE [Concomitant]
     Dates: start: 20120216
  5. REMICADE [Suspect]
     Route: 042
     Dates: start: 20110329
  6. REMICADE [Suspect]
     Indication: CROHN'S DISEASE
     Route: 042
     Dates: start: 20111221
  7. REMICADE [Suspect]
     Indication: INFLAMMATORY BOWEL DISEASE
     Route: 042
     Dates: start: 20111221
  8. ANTIHISTAMINES [Concomitant]

REACTIONS (1)
  - CROHN'S DISEASE [None]
